FAERS Safety Report 14330488 (Version 1)
Quarter: 2017Q4

REPORT INFORMATION
  Report Type: Report from Study
  Country: None (occurrence: KR)
  Receive Date: 20171227
  Receipt Date: 20171227
  Transmission Date: 20180321
  Serious: Yes (Other)
  Sender: FDA-Public Use
  Company Number: KR-ABBVIE-17K-090-2202395-00

PATIENT

DRUGS (1)
  1. HUMIRA [Suspect]
     Active Substance: ADALIMUMAB
     Indication: ANKYLOSING SPONDYLITIS
     Route: 058

REACTIONS (120)
  - Musculoskeletal chest pain [Not Recovered/Not Resolved]
  - Colitis [Not Recovered/Not Resolved]
  - Hepatic steatosis [Recovered/Resolved]
  - Gallbladder polyp [Recovered/Resolved]
  - Liver disorder [Recovered/Resolved]
  - Infection [Not Recovered/Not Resolved]
  - Ankle fracture [Recovered/Resolved]
  - Type 2 diabetes mellitus [Not Recovered/Not Resolved]
  - Arthritis [Not Recovered/Not Resolved]
  - Joint range of motion decreased [Not Recovered/Not Resolved]
  - Eczema [Recovered/Resolved]
  - Myocardial infarction [Recovered/Resolved]
  - Chest pain [Recovered/Resolved]
  - Uveitis [Recovered/Resolved]
  - Anastomotic ulcer [Recovered/Resolved]
  - Ligament rupture [Recovered/Resolved]
  - Dyslipidaemia [Not Recovered/Not Resolved]
  - Gout [Not Recovered/Not Resolved]
  - Arthritis [Recovered/Resolved]
  - Intervertebral disc protrusion [Recovered/Resolved]
  - Benign neoplasm of skin [Not Recovered/Not Resolved]
  - Headache [Not Recovered/Not Resolved]
  - Laryngitis [Recovered/Resolved]
  - Nasopharyngitis [Recovered/Resolved]
  - Upper respiratory tract infection [Not Recovered/Not Resolved]
  - Upper respiratory tract infection [Recovered/Resolved]
  - Cholecystectomy [Recovered/Resolved]
  - Ingrowing nail [Recovered/Resolved]
  - Knee arthroplasty [Recovered/Resolved]
  - Dysplasia [Recovered/Resolved]
  - Cataract [Not Recovered/Not Resolved]
  - Sinus arrhythmia [Not Recovered/Not Resolved]
  - Conjunctivitis [Recovered/Resolved]
  - Stomatitis [Recovered/Resolved]
  - Colitis ulcerative [Recovered/Resolved]
  - Umbilical hernia [Recovered/Resolved]
  - Tendon rupture [Recovered/Resolved]
  - Transaminases increased [Not Recovered/Not Resolved]
  - Dactylitis [Unknown]
  - Spondylolisthesis [Not Recovered/Not Resolved]
  - Presyncope [Recovered/Resolved]
  - Haematuria [Recovered/Resolved]
  - Androgenetic alopecia [Recovered/Resolved]
  - Haemorrhoids [Recovered/Resolved]
  - Hypertension [Not Recovered/Not Resolved]
  - Gastrointestinal pain [Recovered/Resolved]
  - Gastrooesophageal reflux disease [Recovered/Resolved]
  - Hepatic steatosis [Not Recovered/Not Resolved]
  - Herpes zoster [Not Recovered/Not Resolved]
  - Diabetes mellitus [Not Recovered/Not Resolved]
  - Hyperlipidaemia [Unknown]
  - Tendonitis [Recovered/Resolved]
  - Spinal column stenosis [Not Recovered/Not Resolved]
  - Benign prostatic hyperplasia [Not Recovered/Not Resolved]
  - Tonsillitis [Recovered/Resolved]
  - Furuncle [Recovered/Resolved]
  - Psoriasis [Recovered/Resolved]
  - Hip arthroplasty [Recovered/Resolved]
  - Turbinoplasty [Recovered/Resolved]
  - Hypertension [Unknown]
  - Myocardial infarction [Not Recovered/Not Resolved]
  - Macular fibrosis [Not Recovered/Not Resolved]
  - Diarrhoea [Not Recovered/Not Resolved]
  - Cholecystitis [Recovered/Resolved]
  - Tuberculosis [Not Recovered/Not Resolved]
  - Bacterial infection [Recovered/Resolved]
  - Infection [Recovered/Resolved]
  - Hyperlipidaemia [Not Recovered/Not Resolved]
  - Hyperlipidaemia [Recovered/Resolved]
  - Fibromyalgia [Not Recovered/Not Resolved]
  - Osteoporosis [Not Recovered/Not Resolved]
  - Hypoaesthesia [Not Recovered/Not Resolved]
  - Haematuria [Not Recovered/Not Resolved]
  - Psoriasis [Not Recovered/Not Resolved]
  - Anaemia [Recovered/Resolved]
  - Injection site reaction [Recovered/Resolved]
  - Liver disorder [Not Recovered/Not Resolved]
  - Rib fracture [Recovered/Resolved]
  - Transaminases increased [Recovered/Resolved]
  - Obesity [Not Recovered/Not Resolved]
  - Enthesopathy [Recovered/Resolved]
  - Myalgia [Recovered/Resolved]
  - Lipoma [Recovered/Resolved]
  - Dizziness [Recovered/Resolved]
  - Rhinitis [Not Recovered/Not Resolved]
  - Sleep apnoea syndrome [Not Recovered/Not Resolved]
  - Alopecia areata [Recovered/Resolved]
  - Rash [Recovered/Resolved]
  - Anaemia [Not Recovered/Not Resolved]
  - Vestibular disorder [Recovered/Resolved with Sequelae]
  - Dry eye [Not Recovered/Not Resolved]
  - Uveitis [Not Recovered/Not Resolved]
  - Chronic gastritis [Not Recovered/Not Resolved]
  - Dyspepsia [Recovered/Resolved]
  - Hyperchlorhydria [Not Recovered/Not Resolved]
  - Osteopenia [Not Recovered/Not Resolved]
  - Adenoma benign [Recovered/Resolved]
  - Carpal tunnel syndrome [Not Recovered/Not Resolved]
  - Vertebrobasilar insufficiency [Not Recovered/Not Resolved]
  - Urinary tract infection [Recovered/Resolved]
  - Asthma [Not Recovered/Not Resolved]
  - Urticaria [Recovered/Resolved]
  - Keratomileusis [Recovered/Resolved]
  - Behcet^s syndrome [Not Recovered/Not Resolved]
  - Acute coronary syndrome [Not Recovered/Not Resolved]
  - Acute coronary syndrome [Recovered/Resolved]
  - Diarrhoea [Recovered/Resolved]
  - Food poisoning [Recovered/Resolved]
  - Gastritis [Recovered/Resolved]
  - Inflammatory bowel disease [Recovered/Resolved]
  - Irritable bowel syndrome [Recovered/Resolved]
  - Herpes zoster [Recovered/Resolved]
  - Back pain [Recovered/Resolved]
  - Electrolyte imbalance [Not Recovered/Not Resolved]
  - Pain [Recovered/Resolved]
  - Folliculitis [Not Recovered/Not Resolved]
  - Alcohol use disorder [Not Recovered/Not Resolved]
  - Depression [Not Recovered/Not Resolved]
  - Calculus urinary [Recovered/Resolved]
  - Epidural anaesthesia [Recovered/Resolved]

NARRATIVE: CASE EVENT DATE: 20170130
